FAERS Safety Report 16677150 (Version 2)
Quarter: 2019Q4

REPORT INFORMATION
  Report Type: Spontaneous
  Country: IT (occurrence: IT)
  Receive Date: 20190807
  Receipt Date: 20191003
  Transmission Date: 20200122
  Serious: Yes (Other)
  Sender: FDA-Public Use
  Company Number: IT-BIOGEN-2019BI00770190

PATIENT
  Age: 74 Year
  Sex: Male

DRUGS (3)
  1. SPINRAZA [Suspect]
     Active Substance: NUSINERSEN
     Dosage: REGULARLY CARRIED OUT THE INFUSIONS (LOADING DOSE, MAINTENANCE DOSES EVERY FOUR MONTHS)
     Route: 037
  2. SPINRAZA [Suspect]
     Active Substance: NUSINERSEN
     Indication: SPINAL MUSCULAR ATROPHY
     Dosage: REGULARLY CARRIED OUT THE INFUSIONS (LOADING DOSE, MAINTENANCE DOSES EVERY FOUR MONTHS)
     Route: 037
     Dates: start: 20180615
  3. SPINRAZA [Suspect]
     Active Substance: NUSINERSEN
     Dosage: REGULARLY CARRIED OUT THE INFUSIONS (LOADING DOSE, MAINTENANCE DOSES EVERY FOUR MONTHS)
     Route: 037

REACTIONS (1)
  - Adenocarcinoma of colon [Unknown]

NARRATIVE: CASE EVENT DATE: 20190703
